FAERS Safety Report 7245080-3 (Version None)
Quarter: 2011Q1

REPORT INFORMATION
  Report Type: 
  Country: None (occurrence: None)
  Receive Date: 20110126
  Receipt Date: 20110114
  Transmission Date: 20110831
  Serious: Yes (Hospitalization)
  Sender: FDA-Public Use
  Company Number: IN-SANOFI-AVENTIS-2011SA002711

PATIENT
  Age: 72 Year
  Sex: Male

DRUGS (5)
  1. NATRILIX - SLOW RELEASE [Suspect]
     Indication: HYPERTENSION
     Route: 048
     Dates: start: 20101204, end: 20101214
  2. RAMIPRIL [Concomitant]
  3. OLMESARTAN MEDOXOMIL [Concomitant]
  4. AMLODIPINE [Concomitant]
  5. CARVEDILOL [Concomitant]

REACTIONS (2)
  - SYNCOPE [None]
  - HYPONATRAEMIA [None]
